FAERS Safety Report 7844898-3 (Version None)
Quarter: 2011Q4

REPORT INFORMATION
  Report Type: 
  Country: None (occurrence: None)
  Receive Date: 20111025
  Receipt Date: 20100514
  Transmission Date: 20120403
  Serious: No
  Sender: FDA-Public Use
  Company Number: US-BAYER-201023050NA

PATIENT
  Sex: Male

DRUGS (3)
  1. COREG [Concomitant]
     Dosage: UNK
     Dates: start: 19970101
  2. LEVITRA [Suspect]
     Dosage: UNK
  3. ZESTRIL [Concomitant]
     Dosage: UNK
     Dates: start: 19970101

REACTIONS (1)
  - CARDIAC VALVE DISEASE [None]
